FAERS Safety Report 8972366 (Version 2)
Quarter: 2013Q1

REPORT INFORMATION
  Report Type: Spontaneous
  Country: CH (occurrence: CH)
  Receive Date: 20121219
  Receipt Date: 20130114
  Transmission Date: 20140127
  Serious: Yes (Death)
  Sender: FDA-Public Use
  Company Number: CH-PFIZER INC-2012318253

PATIENT
  Age: 84 Year
  Sex: Female
  Weight: 59 kg

DRUGS (1)
  1. XALKORI [Suspect]
     Indication: LUNG ADENOCARCINOMA
     Dosage: 250 MG, 2X/DAY
     Route: 048
     Dates: start: 20121012, end: 20121026

REACTIONS (5)
  - Tracheo-oesophageal fistula [Fatal]
  - Aspiration [Fatal]
  - General physical health deterioration [Fatal]
  - Dysphagia [Fatal]
  - Cough [Fatal]
